FAERS Safety Report 9985923 (Version 1)
Quarter: 2014Q1

REPORT INFORMATION
  Report Type: Report from Study
  Country: US (occurrence: US)
  Receive Date: 20140307
  Receipt Date: 20140307
  Transmission Date: 20141002
  Serious: No
  Sender: FDA-Public Use
  Company Number: US-ABBVIE-13P-163-1090647-00

PATIENT
  Age: 58 Year
  Sex: Female

DRUGS (1)
  1. HUMIRA [Suspect]
     Indication: CROHN^S DISEASE
     Dates: start: 201212

REACTIONS (4)
  - Sinus disorder [Not Recovered/Not Resolved]
  - Toothache [Not Recovered/Not Resolved]
  - Gingival pain [Not Recovered/Not Resolved]
  - Sensitivity of teeth [Not Recovered/Not Resolved]
